FAERS Safety Report 24053044 (Version 2)
Quarter: 2024Q3

REPORT INFORMATION
  Report Type: Spontaneous
  Country: MY (occurrence: MY)
  Receive Date: 20240705
  Receipt Date: 20240710
  Transmission Date: 20241016
  Serious: Yes (Other)
  Sender: GC Biopharma
  Company Number: MY-GC Biopharma Corp.-2158865

PATIENT
  Age: 24 Month
  Sex: Male

DRUGS (1)
  1. HUMAN IMMUNOGLOBULIN G [Suspect]
     Active Substance: HUMAN IMMUNOGLOBULIN G
     Indication: Kawasaki^s disease
     Route: 041

REACTIONS (2)
  - Periorbital swelling [Recovered/Resolved]
  - Hypotension [Recovered/Resolved]
